FAERS Safety Report 8765591 (Version 4)
Quarter: 2012Q4

REPORT INFORMATION
  Report Type: 
  Country: US (occurrence: US)
  Receive Date: 20120903
  Receipt Date: 20121009
  Transmission Date: 20130627
  Serious: Yes (Death)
  Sender: FDA-Public Use
  Company Number: PHEH2012US017077

PATIENT
  Age: 88 Year
  Sex: Male

DRUGS (5)
  1. EXJADE [Suspect]
     Indication: HAEMOCHROMATOSIS
     Dosage: 1500 mg, daily
     Route: 048
     Dates: start: 20120518
  2. LOSARTAN [Suspect]
  3. FUROSEMIDE [Suspect]
  4. AZATHIOPRINE [Suspect]
  5. PREDNISONE [Suspect]
     Dosage: UNK UKN, UNK

REACTIONS (1)
  - Death [Fatal]
